FAERS Safety Report 24987084 (Version 1)
Quarter: 2025Q1

REPORT INFORMATION
  Report Type: Spontaneous
  Country: IT (occurrence: IT)
  Receive Date: 20250219
  Receipt Date: 20250219
  Transmission Date: 20250409
  Serious: Yes (Life-Threatening)
  Sender: BRISTOL-MYERS SQUIBB COMPANY
  Company Number: None

PATIENT
  Age: 60 Year
  Sex: Female

DRUGS (2)
  1. NIVOLUMAB [Suspect]
     Active Substance: NIVOLUMAB
     Indication: Lung neoplasm
     Route: 042
     Dates: start: 20241029
  2. IPILIMUMAB [Suspect]
     Active Substance: IPILIMUMAB
     Indication: Lung neoplasm
     Route: 042
     Dates: start: 20241029

REACTIONS (6)
  - Oropharyngeal pain [Recovered/Resolved]
  - Cough [Recovering/Resolving]
  - Headache [Recovered/Resolved]
  - Dysgeusia [Recovering/Resolving]
  - Dry mouth [Recovering/Resolving]
  - Decreased appetite [Recovering/Resolving]

NARRATIVE: CASE EVENT DATE: 20241224
